FAERS Safety Report 7473211-9 (Version None)
Quarter: 2011Q2

REPORT INFORMATION
  Report Type: 
  Country: None (occurrence: None)
  Receive Date: 20110511
  Receipt Date: 20110505
  Transmission Date: 20111010
  Serious: Yes (Other)
  Sender: FDA-Public Use
  Company Number: A0926850A

PATIENT
  Sex: Female
  Weight: 67.3 kg

DRUGS (4)
  1. WELLBUTRIN [Suspect]
     Route: 048
  2. CHANTIX [Suspect]
     Dosage: .5MG PER DAY
     Route: 048
     Dates: start: 20060101
  3. TRAMADOL HCL [Concomitant]
  4. ALPRAZOLAM [Concomitant]
     Indication: DEPRESSION
     Route: 048

REACTIONS (13)
  - FATIGUE [None]
  - CRYING [None]
  - DYSGEUSIA [None]
  - WEIGHT INCREASED [None]
  - NAUSEA [None]
  - DRUG ADMINISTRATION ERROR [None]
  - FRUSTRATION [None]
  - NEPHROLITHIASIS [None]
  - ANXIETY [None]
  - STRESS [None]
  - DRUG INEFFECTIVE [None]
  - BLOOD URINE PRESENT [None]
  - CYSTOCELE [None]
